FAERS Safety Report 8947288 (Version 1)
Quarter: 2012Q4

REPORT INFORMATION
  Report Type: 
  Country: GB (occurrence: GB)
  Receive Date: 20121205
  Receipt Date: 20121205
  Transmission Date: 20130627
  Serious: Yes (Hospitalization)
  Sender: FDA-Public Use
  Company Number: GB-BAYER-2012-126282

PATIENT
  Age: 50 Year
  Sex: Male

DRUGS (6)
  1. CIPROFLOXACIN [Suspect]
     Indication: URINARY TRACT INFECTION
     Dosage: 500 mg, BID
     Route: 048
     Dates: start: 20121103, end: 20121110
  2. CIPROFLOXACIN [Suspect]
     Indication: ABDOMINAL PAIN
  3. BETAHISTINE [Concomitant]
  4. GLANDOSANE [Concomitant]
  5. HYPROMELLOSE [Concomitant]
     Indication: SJOGREN^S SYNDROME
  6. SERETIDE [Concomitant]

REACTIONS (3)
  - Abdominal pain [Recovered/Resolved]
  - Condition aggravated [Recovered/Resolved]
  - Syncope [Recovered/Resolved]
